FAERS Safety Report 7347127-2 (Version None)
Quarter: 2011Q1

REPORT INFORMATION
  Report Type: 
  Country: None (occurrence: None)
  Receive Date: 20110302
  Receipt Date: 20110216
  Transmission Date: 20110831
  Serious: Yes (Other)
  Sender: FDA-Public Use
  Company Number: 2011US0047

PATIENT
  Age: 4 Year

DRUGS (2)
  1. ANAKINRA (ANAKINRA) [Suspect]
     Indication: JUVENILE ARTHRITIS
     Dosage: 1 MG/KG, 1 IN 1 D
  2. CORTICOSTEROIDS (CORTICOSTEROIDS) [Concomitant]

REACTIONS (2)
  - PARAINFLUENZAE VIRUS INFECTION [None]
  - PNEUMOCOCCAL BACTERAEMIA [None]
